FAERS Safety Report 10265843 (Version 1)
Quarter: 2014Q2

REPORT INFORMATION
  Report Type: Spontaneous
  Country: BE (occurrence: BE)
  Receive Date: 20140627
  Receipt Date: 20140627
  Transmission Date: 20141212
  Serious: Yes (Death, Hospitalization)
  Sender: FDA-Public Use
  Company Number: BE-VIIV HEALTHCARE LIMITED-B1008293A

PATIENT
  Age: 37 Year
  Sex: Male

DRUGS (3)
  1. LAMIVUDINE-HIV [Suspect]
     Indication: HIV INFECTION
     Route: 065
  2. TENOFOVIR [Suspect]
     Indication: HIV INFECTION
     Route: 065
  3. LOPINAVIR + RITONAVIR [Suspect]
     Indication: HIV INFECTION
     Route: 065

REACTIONS (14)
  - Immune reconstitution inflammatory syndrome [Unknown]
  - Status epilepticus [Fatal]
  - Brain oedema [Fatal]
  - Intracranial pressure increased [Unknown]
  - Cryptococcosis [Unknown]
  - Pyrexia [Unknown]
  - Weight decreased [Unknown]
  - Headache [Unknown]
  - Skin lesion [Unknown]
  - Blood alkaline phosphatase abnormal [Unknown]
  - Blood lactate dehydrogenase abnormal [Unknown]
  - Blood creatine phosphokinase abnormal [Unknown]
  - Aspartate aminotransferase abnormal [Unknown]
  - Epilepsy [Unknown]
